FAERS Safety Report 9917720 (Version 2)
Quarter: 2014Q1

REPORT INFORMATION
  Report Type: Spontaneous
  Country: TH (occurrence: TH)
  Receive Date: 20140221
  Receipt Date: 20140304
  Transmission Date: 20141002
  Serious: Yes (Death, Hospitalization)
  Sender: FDA-Public Use
  Company Number: TH-BAXTER-2014BAX009263

PATIENT
  Sex: Male

DRUGS (1)
  1. DIANEAL PD-2 PERITONEAL DIALYSIS SOL WITH 1.5 PERCENT DEXT [Suspect]
     Indication: PERITONEAL DIALYSIS
     Route: 033
     Dates: start: 20110729

REACTIONS (2)
  - Unevaluable event [Fatal]
  - Pneumonia [Unknown]
